FAERS Safety Report 4886772-0 (Version None)
Quarter: 2005Q4

REPORT INFORMATION
  Report Type: 
  Country: None (occurrence: None)
  Receive Date: 20051220
  Receipt Date: 20041207
  Transmission Date: 20060501
  Serious: Yes (Hospitalization, Disabling, Other)
  Sender: FDA-Public Use
  Company Number: HQWYE123020SEP04

PATIENT
  Age: 49 Year
  Sex: Male
  Weight: 68.1 kg

DRUGS (5)
  1. EFFEXOR XR [Suspect]
     Indication: DEPRESSION
     Dosage: 150 MG 1X PER 1 DAY, ORAL
     Route: 048
     Dates: start: 20030606
  2. PANCREASE (PANCRELIPASE) [Concomitant]
  3. ATIVAN [Concomitant]
  4. BENTYL [Concomitant]
  5. PRILOSEC [Concomitant]

REACTIONS (2)
  - CONDITION AGGRAVATED [None]
  - PANCREATITIS [None]
